FAERS Safety Report 16995495 (Version 1)
Quarter: 2019Q4

REPORT INFORMATION
  Report Type: Spontaneous
  Country: GR (occurrence: GR)
  Receive Date: 20191105
  Receipt Date: 20191105
  Transmission Date: 20200122
  Serious: Yes (Hospitalization)
  Sender: FDA-Public Use
  Company Number: GR-MYLANLABS-2019M1104213

PATIENT
  Age: 92 Year
  Sex: Female

DRUGS (3)
  1. MEMANTINE MYLAN [Suspect]
     Active Substance: MEMANTINE
     Indication: NERVOUS SYSTEM DISORDER
     Dosage: 10 MILLIGRAM, QD
  2. FLECAINIDE [Suspect]
     Active Substance: FLECAINIDE
     Indication: ATRIAL FIBRILLATION
     Dosage: 100 MILLIGRAM, BID
  3. QUETIAPINA MYLAN [Suspect]
     Active Substance: QUETIAPINE
     Indication: NERVOUS SYSTEM DISORDER
     Dosage: 400 MILLIGRAM, QD

REACTIONS (9)
  - Device malfunction [Recovered/Resolved]
  - Diarrhoea [Recovered/Resolved]
  - Blood pressure systolic decreased [Recovered/Resolved]
  - Acute kidney injury [Recovered/Resolved]
  - Stupor [Recovered/Resolved]
  - Oliguria [Recovered/Resolved]
  - Vomiting [Recovered/Resolved]
  - Electrocardiogram QT prolonged [Recovered/Resolved]
  - Metabolic acidosis [Recovered/Resolved]
